FAERS Safety Report 5412835-7 (Version None)
Quarter: 2007Q3

REPORT INFORMATION
  Report Type: 
  Country: None (occurrence: None)
  Receive Date: 20070813
  Receipt Date: 20070808
  Transmission Date: 20080115
  Serious: Yes (Death, Hospitalization)
  Sender: FDA-Public Use
  Company Number: FR-GILEAD-2007-0013021

PATIENT
  Sex: Female

DRUGS (5)
  1. TRUVADA [Suspect]
     Route: 048
     Dates: start: 20070101, end: 20070601
  2. SUSTIVA [Suspect]
     Route: 048
     Dates: start: 20070101, end: 20070601
  3. RULID [Suspect]
     Indication: CHLAMYDIAL INFECTION
     Dates: start: 20070501, end: 20070515
  4. HYTACAND [Suspect]
     Indication: HYPERTENSION
     Dates: start: 20070201, end: 20070613
  5. INIPOMP [Concomitant]
     Indication: DYSPEPSIA
     Dates: start: 20070515

REACTIONS (3)
  - BRAIN DEATH [None]
  - HEPATIC ENCEPHALOPATHY [None]
  - HEPATITIS FULMINANT [None]
